FAERS Safety Report 23961214 (Version 1)
Quarter: 2024Q2

REPORT INFORMATION
  Report Type: Spontaneous
  Country: IT (occurrence: None)
  Receive Date: 20240611
  Receipt Date: 20240611
  Transmission Date: 20240716
  Serious: No
  Sender: FDA-Public Use
  Company Number: IT-ROCHE-3578315

PATIENT
  Age: 36 Year
  Sex: Female

DRUGS (1)
  1. OCRELIZUMAB [Suspect]
     Active Substance: OCRELIZUMAB
     Indication: Multiple sclerosis
     Dosage: DRUG SUSPENDED DATE 16/MAY/2023
     Route: 065

REACTIONS (3)
  - Maternal exposure timing unspecified [Unknown]
  - Transaminases increased [Unknown]
  - Escherichia test positive [Unknown]
